FAERS Safety Report 6336620-7 (Version None)
Quarter: 2009Q3

REPORT INFORMATION
  Report Type: 
  Country: None (occurrence: None)
  Receive Date: 20090831
  Receipt Date: 20090831
  Transmission Date: 20100115
  Serious: Yes (Death, Other)
  Sender: FDA-Public Use
  Company Number: None

PATIENT
  Age: 55 Year
  Sex: Male
  Weight: 81.6475 kg

DRUGS (1)
  1. ABILIFY [Suspect]
     Dosage: PO
     Route: 048
     Dates: start: 20090523, end: 20090810

REACTIONS (1)
  - COMPLETED SUICIDE [None]
